FAERS Safety Report 12877367 (Version 1)
Quarter: 2016Q4

REPORT INFORMATION
  Report Type: Spontaneous
  Country: US (occurrence: US)
  Receive Date: 20161024
  Receipt Date: 20161024
  Transmission Date: 20170207
  Serious: No
  Sender: FDA-Public Use
  Company Number: US-UNIQUE PHARMACEUTICAL LABORATORIES-2015RIS00179

PATIENT
  Age: 91 Year
  Sex: Female
  Weight: 86.17 kg

DRUGS (3)
  1. ^BLOOD PRESSURE MEDICATION^ (UNSPECIFIED) [Concomitant]
  2. CETIRIZINE [Suspect]
     Active Substance: CETIRIZINE HYDROCHLORIDE
     Indication: HYPERSENSITIVITY
     Dosage: 5 MG, ONCE
     Route: 048
     Dates: start: 20151112, end: 20151112
  3. ^THYROID MEDICINE^ (UNSPECIFIED) [Concomitant]

REACTIONS (1)
  - Constipation [Recovered/Resolved]

NARRATIVE: CASE EVENT DATE: 20151113
